FAERS Safety Report 9748456 (Version 2)
Quarter: 2014Q1

REPORT INFORMATION
  Report Type: Spontaneous
  Country: US (occurrence: None)
  Receive Date: 20131209
  Receipt Date: 20140106
  Transmission Date: 20141002
  Serious: Yes (Other)
  Sender: FDA-Public Use
  Company Number: 2013P1021625

PATIENT
  Age: 14 Year
  Sex: Male

DRUGS (2)
  1. MYORISAN [Suspect]
     Indication: ACNE CYSTIC
     Route: 048
     Dates: start: 20131003
  2. CLARAVIS [Suspect]
     Dates: start: 20131101

REACTIONS (3)
  - Limb operation [None]
  - Upper limb fracture [None]
  - Joint dislocation [None]
